FAERS Safety Report 24370341 (Version 1)
Quarter: 2024Q3

REPORT INFORMATION
  Report Type: Spontaneous
  Country: ES (occurrence: ES)
  Receive Date: 20240927
  Receipt Date: 20240927
  Transmission Date: 20241017
  Serious: Yes (Hospitalization, Other)
  Sender: AUROBINDO
  Company Number: ES-AEMPS-1570727

PATIENT
  Age: 42 Year
  Sex: Female

DRUGS (2)
  1. DIAZEPAM [Interacting]
     Active Substance: DIAZEPAM
     Indication: Muscle contracture
     Dosage: UNK
     Route: 048
     Dates: start: 20240301, end: 20240301
  2. CLONIDINE HYDROCHLORIDE [Interacting]
     Active Substance: CLONIDINE HYDROCHLORIDE
     Indication: Rosacea
     Dosage: 250 MILLIGRAM, ONCE A DAY
     Route: 048
     Dates: start: 20240301, end: 20240301

REACTIONS (1)
  - Depressed level of consciousness [Recovered/Resolved]

NARRATIVE: CASE EVENT DATE: 20240301
